FAERS Safety Report 6094389-8 (Version None)
Quarter: 2009Q1

REPORT INFORMATION
  Report Type: 
  Country: None (occurrence: None)
  Receive Date: 20090226
  Receipt Date: 20090217
  Transmission Date: 20090719
  Serious: Yes (Other)
  Sender: FDA-Public Use
  Company Number: CA-ELI_LILLY_AND_COMPANY-CA200901003308

PATIENT
  Sex: Female

DRUGS (3)
  1. CYMBALTA [Suspect]
     Indication: DEPRESSION
     Dosage: 60 MG, UNK
     Route: 048
     Dates: start: 20081027, end: 20081128
  2. VENLAFAXINE HYDROCHLORIDE [Concomitant]
  3. GARASONE [Concomitant]
     Indication: OTITIS EXTERNA
     Route: 001

REACTIONS (2)
  - DEPRESSION [None]
  - SUICIDE ATTEMPT [None]
